FAERS Safety Report 8937101 (Version 1)
Quarter: 2012Q4

REPORT INFORMATION
  Report Type: Spontaneous
  Country: US (occurrence: None)
  Receive Date: 20121128
  Receipt Date: 20121128
  Transmission Date: 20130627
  Serious: Yes (Other)
  Sender: FDA-Public Use
  Company Number: None

PATIENT
  Age: 64 Year
  Sex: Female
  Weight: 79.38 kg

DRUGS (1)
  1. LEVOFLOXACIN [Suspect]
     Indication: PNEUMONIA
     Dosage: 1 750 mg tablet once daily po
     Route: 048
     Dates: start: 20121029, end: 20121102

REACTIONS (9)
  - Palpitations [None]
  - Musculoskeletal stiffness [None]
  - Pain in extremity [None]
  - Pain in extremity [None]
  - Paraesthesia [None]
  - Arthralgia [None]
  - Joint swelling [None]
  - Gait disturbance [None]
  - Tenderness [None]
